FAERS Safety Report 14570595 (Version 1)
Quarter: 2018Q1

REPORT INFORMATION
  Report Type: Spontaneous
  Country: FR (occurrence: FR)
  Receive Date: 20180226
  Receipt Date: 20180226
  Transmission Date: 20180509
  Serious: Yes (Hospitalization)
  Sender: FDA-Public Use
  Company Number: FR-CONCORDIA PHARMACEUTICALS INC.-E2B_00010091

PATIENT
  Age: 59 Year
  Sex: Male
  Weight: 92 kg

DRUGS (13)
  1. OMEPRAZOLE. [Concomitant]
     Active Substance: OMEPRAZOLE
  2. ALTIM 3,75 MG/1,5 ML, SUSPENSION INJECTABLE EN SERINGUE PR?-REMPLIE [Suspect]
     Active Substance: CORTIVAZOL
     Indication: PSORIATIC ARTHROPATHY
     Route: 014
  3. CRESTOR [Concomitant]
     Active Substance: ROSUVASTATIN CALCIUM
  4. LANTUS [Concomitant]
     Active Substance: INSULIN GLARGINE
  5. CO RENITEC, COMPRIM? S?CABLE [Concomitant]
  6. PREDNISOLONE. [Suspect]
     Active Substance: PREDNISOLONE
     Indication: PSORIATIC ARTHROPATHY
     Route: 014
  7. DOLIPRANE 1000 MG, COMPRIM? [Concomitant]
  8. CHONDROSULF [Concomitant]
     Active Substance: CHONDROITIN SULFATE (CHICKEN)
  9. LYRICA [Concomitant]
     Active Substance: PREGABALIN
  10. DAONIL 5 MG, COMPRIM? S?CABLE [Concomitant]
  11. UVEDOSE [Concomitant]
     Active Substance: CHOLECALCIFEROL
  12. METFORMINE [Concomitant]
     Active Substance: METFORMIN HYDROCHLORIDE
  13. DILTIAZEM (CHLORHYDRATE DE) [Concomitant]

REACTIONS (1)
  - Diabetes mellitus inadequate control [Not Recovered/Not Resolved]

NARRATIVE: CASE EVENT DATE: 201707
